FAERS Safety Report 22676149 (Version 1)
Quarter: 2023Q2

REPORT INFORMATION
  Report Type: Spontaneous
  Country: US (occurrence: None)
  Receive Date: 20230629
  Receipt Date: 20230629
  Transmission Date: 20230722
  Serious: No
  Sender: FDA-Public Use
  Company Number: None

PATIENT

DRUGS (1)
  1. ESCITALOPRAM [Suspect]
     Active Substance: ESCITALOPRAM OXALATE

REACTIONS (18)
  - Fatigue [None]
  - Dizziness [None]
  - Headache [None]
  - Feeling abnormal [None]
  - Palpitations [None]
  - Chest discomfort [None]
  - Chest pain [None]
  - Irritability [None]
  - Anxiety [None]
  - Chills [None]
  - Nausea [None]
  - Diarrhoea [None]
  - Panic attack [None]
  - Visual impairment [None]
  - Hypoacusis [None]
  - Product dispensing error [None]
  - Incorrect dose administered [None]
  - Wrong product administered [None]

NARRATIVE: CASE EVENT DATE: 20230519
